FAERS Safety Report 7912207-7 (Version None)
Quarter: 2011Q4

REPORT INFORMATION
  Report Type: 
  Country: None (occurrence: None)
  Receive Date: 20111114
  Receipt Date: 20110311
  Transmission Date: 20120403
  Serious: Yes (Other)
  Sender: FDA-Public Use
  Company Number: DE-ACTELION-A-US2011-56628

PATIENT

DRUGS (4)
  1. WARFARIN SODIUM [Concomitant]
  2. ALDACTONE [Concomitant]
  3. VENTAVIS [Suspect]
     Indication: PRODUCT USED FOR UNKNOWN INDICATION
     Dosage: UNK
     Route: 055
  4. DILTIAZEM HCL [Concomitant]

REACTIONS (2)
  - GINGIVAL HYPERTROPHY [None]
  - GINGIVECTOMY [None]
